FAERS Safety Report 14417349 (Version 1)
Quarter: 2018Q1

REPORT INFORMATION
  Report Type: Spontaneous
  Country: US (occurrence: US)
  Receive Date: 20180122
  Receipt Date: 20180122
  Transmission Date: 20180509
  Serious: Yes (Other)
  Sender: FDA-Public Use
  Company Number: US-NOVOPROD-256607

PATIENT
  Age: 5 Year
  Sex: Male

DRUGS (7)
  1. NOVOSEVEN [Suspect]
     Active Substance: COAGULATION FACTOR VIIA RECOMBINANT HUMAN
     Dosage: 90 ?G/KG/2 HR
     Route: 042
     Dates: start: 199101, end: 199101
  2. NOVOSEVEN [Suspect]
     Active Substance: COAGULATION FACTOR VIIA RECOMBINANT HUMAN
     Indication: HAEMOPHILIA A WITH ANTI FACTOR VIII
     Dosage: 95 ?G/KG/2 HR FOR TWO DOSES
     Route: 042
     Dates: start: 199005, end: 199005
  3. NOVOSEVEN [Suspect]
     Active Substance: COAGULATION FACTOR VIIA RECOMBINANT HUMAN
     Indication: HAEMORRHAGE INTRACRANIAL
     Dosage: 90 ?G/KG/4 HR
     Route: 042
     Dates: start: 199005, end: 199005
  4. NOVOSEVEN [Suspect]
     Active Substance: COAGULATION FACTOR VIIA RECOMBINANT HUMAN
     Dosage: 135 ?G/KG/2 HR
     Route: 042
     Dates: start: 199101, end: 199101
  5. NOVOSEVEN [Suspect]
     Active Substance: COAGULATION FACTOR VIIA RECOMBINANT HUMAN
     Dosage: 135 ?G/KG/3 HR
     Route: 042
     Dates: start: 199101, end: 199101
  6. NOVOSEVEN [Suspect]
     Active Substance: COAGULATION FACTOR VIIA RECOMBINANT HUMAN
     Dosage: 90 ?G/KG/2 HR
     Route: 042
     Dates: start: 199101, end: 199101
  7. NOVOSEVEN [Suspect]
     Active Substance: COAGULATION FACTOR VIIA RECOMBINANT HUMAN
     Dosage: 90 ?G/KG/3 HR
     Route: 042
     Dates: start: 199101, end: 199101

REACTIONS (3)
  - Transient ischaemic attack [Recovered/Resolved]
  - Status epilepticus [Recovered/Resolved]
  - Embolism [Recovered/Resolved]

NARRATIVE: CASE EVENT DATE: 199101
